FAERS Safety Report 15505884 (Version 1)
Quarter: 2018Q4

REPORT INFORMATION
  Report Type: Spontaneous
  Country: US (occurrence: US)
  Receive Date: 20181016
  Receipt Date: 20181016
  Transmission Date: 20190205
  Serious: No
  Sender: FDA-Public Use
  Company Number: US-PFIZER INC-2017536786

PATIENT
  Age: 18 Year
  Sex: Male

DRUGS (3)
  1. GENOTROPIN [Suspect]
     Active Substance: SOMATROPIN
     Indication: ADRENAL INSUFFICIENCY
     Dosage: UNK
     Route: 058
  2. GENOTROPIN [Suspect]
     Active Substance: SOMATROPIN
     Dosage: 1.6 MG, DAILY
     Route: 058
     Dates: start: 20100223
  3. GENOTROPIN [Suspect]
     Active Substance: SOMATROPIN
     Dosage: 3.5 MG, DAILY (0.33MG/KG/WK)
     Route: 058

REACTIONS (5)
  - Product dose omission [Unknown]
  - Product use in unapproved indication [Unknown]
  - Insulin-like growth factor decreased [Unknown]
  - Incorrect dose administered [Unknown]
  - Device issue [Unknown]

NARRATIVE: CASE EVENT DATE: 20180528
